FAERS Safety Report 10005834 (Version 2)
Quarter: 2014Q1

REPORT INFORMATION
  Report Type: Spontaneous
  Country: JP (occurrence: JP)
  Receive Date: 20140313
  Receipt Date: 20140313
  Transmission Date: 20141002
  Serious: Yes (Hospitalization)
  Sender: FDA-Public Use
  Company Number: JP-ROCHE-1250276

PATIENT
  Age: 63 Year
  Sex: Male
  Weight: 62 kg

DRUGS (7)
  1. ACTEMRA [Suspect]
     Indication: RHEUMATOID ARTHRITIS
     Route: 041
     Dates: start: 20120322, end: 2013
  2. ACTEMRA [Suspect]
     Indication: RHEUMATOID ARTHRITIS
     Route: 041
     Dates: start: 20130808
  3. RHEUMATREX [Concomitant]
     Route: 048
     Dates: start: 20090123
  4. RHEUMATREX [Concomitant]
     Route: 048
     Dates: start: 20111206, end: 2013
  5. RHEUMATREX [Concomitant]
     Route: 048
     Dates: start: 20130905
  6. PROGRAF [Concomitant]
     Route: 065
     Dates: start: 20090725
  7. FOLIAMIN [Concomitant]
     Route: 065
     Dates: start: 20090123

REACTIONS (2)
  - Pneumocystis jirovecii pneumonia [Recovering/Resolving]
  - Chest X-ray abnormal [Recovering/Resolving]
